FAERS Safety Report 9896434 (Version 1)
Quarter: 2014Q1

REPORT INFORMATION
  Report Type: Spontaneous
  Country: US (occurrence: US)
  Receive Date: 20140213
  Receipt Date: 20140213
  Transmission Date: 20141002
  Serious: No
  Sender: FDA-Public Use
  Company Number: US-BRISTOL-MYERS SQUIBB COMPANY-19899954

PATIENT
  Age: 58 Year
  Sex: Female
  Weight: 71.65 kg

DRUGS (3)
  1. ABATACEPT SUBQ INJECTION 125MG/ML [Suspect]
     Indication: RHEUMATOID ARTHRITIS
     Route: 058
     Dates: start: 20131002
  2. VITAMIN D [Concomitant]
  3. VOLTAREN [Concomitant]

REACTIONS (1)
  - Ocular hyperaemia [Recovered/Resolved]
